FAERS Safety Report 9312427 (Version 2)
Quarter: 2013Q2

REPORT INFORMATION
  Report Type: Spontaneous
  Country: US (occurrence: None)
  Receive Date: 20130507
  Receipt Date: 20130614
  Transmission Date: 20140414
  Serious: No
  Sender: FDA-Public Use
  Company Number: 2013035706

PATIENT
  Age: 34 Year
  Sex: Male
  Weight: 65.77 kg

DRUGS (2)
  1. PRIVIGEN [Suspect]
     Indication: METAPNEUMOVIRUS INFECTION
     Dosage: 35 G, 20 GM (10%)
     Route: 042
     Dates: start: 20130401
  2. BLOOD TRANSFUSIOIN (BLOOD TRANSFUSION, AUXILIARY PRODUCTS) [Concomitant]

REACTIONS (2)
  - Deltaretrovirus test positive [None]
  - Suspected transmission of an infectious agent via product [None]
